FAERS Safety Report 8998499 (Version 2)
Quarter: 2013Q1

REPORT INFORMATION
  Report Type: Report from Study
  Country: US (occurrence: US)
  Receive Date: 20130103
  Receipt Date: 20130218
  Transmission Date: 20140127
  Serious: Yes (Hospitalization)
  Sender: FDA-Public Use
  Company Number: US-BAYER-2012-135235

PATIENT
  Age: 41 Year
  Sex: Female

DRUGS (3)
  1. BETASERON [Suspect]
     Indication: RELAPSING-REMITTING MULTIPLE SCLEROSIS
     Dosage: 8 MIU, QOD
     Route: 058
     Dates: start: 20030319, end: 20121122
  2. BETASERON [Suspect]
     Indication: RELAPSING-REMITTING MULTIPLE SCLEROSIS
     Dosage: 8 MIU, QOD
     Route: 058
     Dates: start: 20130206
  3. BIPOLAR MEDIACTION (UNSPECIFIED) [Concomitant]
     Indication: BIPOLAR DISORDER

REACTIONS (5)
  - Gallbladder obstruction [Recovered/Resolved]
  - Pyrexia [Recovered/Resolved]
  - Unresponsive to stimuli [Recovered/Resolved]
  - Fatigue [Recovering/Resolving]
  - Crying [Recovering/Resolving]
